FAERS Safety Report 20823781 (Version 1)
Quarter: 2022Q2

REPORT INFORMATION
  Report Type: Spontaneous
  Country: CN (occurrence: CN)
  Receive Date: 20220513
  Receipt Date: 20220513
  Transmission Date: 20220721
  Serious: Yes (Other)
  Sender: FDA-Public Use
  Company Number: CN-SUN PHARMACEUTICAL INDUSTRIES LTD-2022R1-335899

PATIENT
  Age: 54 Year
  Sex: Male

DRUGS (3)
  1. CARBOPLATIN [Suspect]
     Active Substance: CARBOPLATIN
     Indication: Small cell lung cancer
     Dosage: UNK (5 MG/ML/MIN) EVERY 21 D ON DAY 1
     Route: 042
  2. DOCETAXEL [Suspect]
     Active Substance: DOCETAXEL
     Indication: Small cell lung cancer
     Dosage: 75 MILLIGRAM/SQ. METER
     Route: 042
  3. CATEQUENTINIB [Suspect]
     Active Substance: CATEQUENTINIB
     Indication: Small cell lung cancer
     Dosage: 12 MILLIGRAM, DAILY DAY 1-14
     Route: 065

REACTIONS (1)
  - Neoplasm recurrence [Unknown]
